FAERS Safety Report 8241342-1 (Version None)
Quarter: 2012Q1

REPORT INFORMATION
  Report Type: 
  Country: None (occurrence: None)
  Receive Date: 20120328
  Receipt Date: 20120322
  Transmission Date: 20120608
  Serious: Yes (Hospitalization)
  Sender: FDA-Public Use
  Company Number: FR-ABBOTT-12P-056-0917808-00

PATIENT
  Sex: Male

DRUGS (8)
  1. PREZISTA [Suspect]
     Indication: HIV TEST POSITIVE
     Route: 048
     Dates: start: 20111114, end: 20111128
  2. NORVIR [Suspect]
     Indication: HIV TEST POSITIVE
     Route: 048
     Dates: start: 20020411, end: 20111128
  3. INTELENCE [Suspect]
     Indication: HIV TEST POSITIVE
     Route: 048
     Dates: start: 20111114, end: 20111128
  4. MARAVIROC [Suspect]
     Indication: HIV TEST POSITIVE
     Route: 048
     Dates: start: 20111114, end: 20111128
  5. MARAVIROC [Suspect]
     Dates: start: 20111201
  6. INTELENCE [Suspect]
     Dates: start: 20111201
  7. NORVIR [Suspect]
     Dates: start: 20111201
  8. PREZISTA [Suspect]
     Dates: start: 20111201

REACTIONS (4)
  - PYREXIA [None]
  - LYMPHADENOPATHY [None]
  - URTICARIA PAPULAR [None]
  - PRURIGO [None]
